FAERS Safety Report 7645440-2 (Version None)
Quarter: 2011Q3

REPORT INFORMATION
  Report Type: 
  Country: None (occurrence: None)
  Receive Date: 20110729
  Receipt Date: 20110726
  Transmission Date: 20111222
  Serious: Yes (Other)
  Sender: FDA-Public Use
  Company Number: US-PFIZER INC-2011134208

PATIENT
  Sex: Female
  Weight: 81.633 kg

DRUGS (9)
  1. CITALOPRAM [Concomitant]
     Indication: MULTIPLE SCLEROSIS
     Dosage: UNK
  2. CHANTIX [Suspect]
     Dosage: UNK
     Route: 048
     Dates: start: 20110101, end: 20110101
  3. FLEXIN [Concomitant]
     Dosage: UNK
  4. HYDROCODONE [Concomitant]
     Indication: MULTIPLE SCLEROSIS
     Dosage: UNK
  5. ACETAMINOPHEN AND HYDROCODONE BITARTRATE [Concomitant]
     Dosage: FOUR TIMES A DAY
  6. CHANTIX [Suspect]
     Indication: SMOKING CESSATION THERAPY
     Dosage: 0.5 MG, 1X/DAY
     Route: 048
     Dates: start: 20110527, end: 20110101
  7. GABAPENTIN [Concomitant]
     Indication: MULTIPLE SCLEROSIS
     Dosage: UNK
  8. PROMETHAZINE [Concomitant]
     Indication: MULTIPLE SCLEROSIS
     Dosage: UNK
  9. ZOLPIDEM [Concomitant]
     Indication: SLEEP DISORDER
     Dosage: UNK

REACTIONS (2)
  - MIGRAINE [None]
  - INTERVERTEBRAL DISC PROTRUSION [None]
